FAERS Safety Report 24094648 (Version 1)
Quarter: 2024Q3

REPORT INFORMATION
  Report Type: Spontaneous
  Country: US (occurrence: US)
  Receive Date: 20240716
  Receipt Date: 20240716
  Transmission Date: 20241016
  Serious: No
  Sender: APOTEX
  Company Number: US-APOTEX-2023AP012324

PATIENT
  Sex: Female

DRUGS (2)
  1. TRAVOPROST [Suspect]
     Active Substance: TRAVOPROST
     Indication: Product used for unknown indication
     Dosage: 2 GTT DROPS, Q.H.S. (ONE DROP IN EACH EYE)
     Route: 047
  2. DORZOLAMIDE HYDROCHLORIDE [Suspect]
     Active Substance: DORZOLAMIDE HYDROCHLORIDE
     Indication: Product used for unknown indication
     Dosage: 2 GTT DROPS, BID (ONE DROPS IN TO BOTH THE EYES)
     Route: 047

REACTIONS (7)
  - Chromaturia [Unknown]
  - Vision blurred [Unknown]
  - Incontinence [Unknown]
  - Headache [Unknown]
  - Fatigue [Unknown]
  - Hair growth abnormal [Unknown]
  - Liver disorder [Unknown]
